FAERS Safety Report 5702065-3 (Version None)
Quarter: 2008Q2

REPORT INFORMATION
  Report Type: 
  Country: None (occurrence: None)
  Receive Date: 20080411
  Receipt Date: 20070710
  Transmission Date: 20081010
  Serious: No
  Sender: FDA-Public Use
  Company Number: US-ABBOTT-07P-163-0374170-00

PATIENT
  Age: 55 Year
  Sex: Female

DRUGS (4)
  1. DEPAKOTE [Suspect]
     Indication: SCHIZOPHRENIA, PARANOID TYPE
     Route: 048
     Dates: start: 20030101
  2. CLOZAPINE [Suspect]
     Indication: SCHIZOPHRENIA
     Dosage: QHS
     Route: 048
  3. RISPERDAL [Concomitant]
     Indication: SCHIZOPHRENIA
     Dosage: 3 MG Q AM, 4.5 MG QHS
     Route: 048
  4. DOCUSATE SODIUM [Concomitant]
     Indication: CONSTIPATION PROPHYLAXIS
     Route: 048

REACTIONS (1)
  - NEUTROPHIL COUNT DECREASED [None]
